FAERS Safety Report 4719290-0 (Version None)
Quarter: 2005Q3

REPORT INFORMATION
  Report Type: 
  Country: None (occurrence: None)
  Receive Date: 20050721
  Receipt Date: 20040902
  Transmission Date: 20060218
  Serious: No
  Sender: FDA-Public Use
  Company Number: US-GLAXOSMITHKLINE-A0524520A

PATIENT
  Age: 58 Year
  Sex: Female

DRUGS (3)
  1. MALARONE [Suspect]
     Indication: PROPHYLAXIS
     Dosage: 1TAB PER DAY
     Route: 048
     Dates: start: 20040801
  2. ASPIRIN [Concomitant]
  3. MULTI-VITAMIN [Concomitant]

REACTIONS (1)
  - INSOMNIA [None]
